FAERS Safety Report 13280861 (Version 1)
Quarter: 2017Q1

REPORT INFORMATION
  Report Type: Report from Study
  Country: US (occurrence: US)
  Receive Date: 20170301
  Receipt Date: 20170301
  Transmission Date: 20170428
  Serious: Yes (Other)
  Sender: FDA-Public Use
  Company Number: US-KYOWAKIRIN-2017BKK000427

PATIENT

DRUGS (2)
  1. GRANISETRON [Suspect]
     Active Substance: GRANISETRON
     Dosage: 1 DF, 1X/2 WEEKS, EVERY OTHER MONDAY BEFORE CHEMOTHERAPY (TO UPPER ARM)
     Route: 062
     Dates: start: 201611
  2. GRANISETRON [Suspect]
     Active Substance: GRANISETRON
     Indication: PROPHYLAXIS OF NAUSEA AND VOMITING
     Dosage: 1 DF, 1X/WEEK, EVERY MONDAY BEFORE CHEMOTHERAPY (TO UPPER ARM)
     Route: 062
     Dates: start: 201603, end: 201611

REACTIONS (4)
  - Product adhesion issue [Unknown]
  - Thrombocytopenia [Unknown]
  - Drug prescribing error [Unknown]
  - Inappropriate schedule of drug administration [Unknown]

NARRATIVE: CASE EVENT DATE: 20170213
